FAERS Safety Report 21303877 (Version 1)
Quarter: 2022Q3

REPORT INFORMATION
  Report Type: Spontaneous
  Country: US (occurrence: US)
  Receive Date: 20220907
  Receipt Date: 20220907
  Transmission Date: 20221027
  Serious: No
  Sender: FDA-Public Use
  Company Number: US-INCYTE CORPORATION-2022IN008421

PATIENT

DRUGS (3)
  1. JAKAFI [Suspect]
     Active Substance: RUXOLITINIB
     Indication: Polycythaemia vera
     Dosage: 10 MILLIGRAM
     Route: 065
     Dates: start: 2017
  2. JAKAFI [Suspect]
     Active Substance: RUXOLITINIB
     Dosage: 15 MILLIGRAM
     Route: 065
     Dates: start: 2017
  3. JAKAFI [Suspect]
     Active Substance: RUXOLITINIB
     Dosage: UNK, 2 A DAY
     Route: 065

REACTIONS (3)
  - Product physical issue [Unknown]
  - Product container seal issue [Unknown]
  - Full blood count abnormal [Unknown]
